FAERS Safety Report 9468215 (Version 1)
Quarter: 2013Q3

REPORT INFORMATION
  Report Type: Report from Study
  Country: US (occurrence: US)
  Receive Date: 20130821
  Receipt Date: 20130821
  Transmission Date: 20140515
  Serious: Yes (Other)
  Sender: FDA-Public Use
  Company Number: US-US-EMD SERONO, INC.-7231926

PATIENT
  Sex: Female

DRUGS (2)
  1. REBIF [Suspect]
     Indication: MULTIPLE SCLEROSIS
     Route: 058
     Dates: start: 20120809
  2. OXYCONTIN [Concomitant]
     Indication: PRODUCT USED FOR UNKNOWN INDICATION
     Dates: end: 201308

REACTIONS (9)
  - Clavicle fracture [Unknown]
  - Optic nerve infarction [Recovered/Resolved]
  - Post-traumatic stress disorder [Not Recovered/Not Resolved]
  - Upper limb fracture [Unknown]
  - Muscular weakness [Not Recovered/Not Resolved]
  - Neuralgia [Unknown]
  - Joint injury [Unknown]
  - Back pain [Unknown]
  - Myalgia [Unknown]
